FAERS Safety Report 24275986 (Version 3)
Quarter: 2025Q1

REPORT INFORMATION
  Report Type: Spontaneous
  Country: CA (occurrence: CA)
  Receive Date: 20240903
  Receipt Date: 20250227
  Transmission Date: 20250409
  Serious: Yes (Hospitalization)
  Sender: CELLTRION
  Company Number: CA-CELLTRION INC.-2024CA020729

PATIENT

DRUGS (3)
  1. INFLIXIMAB [Suspect]
     Active Substance: INFLIXIMAB
     Indication: Crohn^s disease
     Dosage: 120 MG, Q2WEEKS
     Route: 058
  2. INFLIXIMAB [Suspect]
     Active Substance: INFLIXIMAB
     Dosage: 240 MG, Q 2 WEEKS
     Route: 058
     Dates: start: 20240816
  3. INFLIXIMAB [Suspect]
     Active Substance: INFLIXIMAB
     Dosage: KIT, 1 EVERY 2 WEEKS
     Route: 058

REACTIONS (2)
  - Hospitalisation [Unknown]
  - Intentional product use issue [Unknown]
